FAERS Safety Report 4269209-4 (Version None)
Quarter: 2004Q1

REPORT INFORMATION
  Report Type: 
  Country: None (occurrence: None)
  Receive Date: 20040112
  Receipt Date: 20040112
  Transmission Date: 20041129
  Serious: Yes (Life-Threatening, Hospitalization)
  Sender: FDA-Public Use
  Company Number: None

PATIENT
  Age: 73 Year
  Sex: Male
  Weight: 75 kg

DRUGS (6)
  1. PREDNISONE [Suspect]
     Indication: MULTIPLE MYELOMA
     Dosage: 100 MG QD PO
     Route: 048
     Dates: start: 20031215, end: 20031217
  2. THALIDOMIDE [Concomitant]
  3. NIACIN [Concomitant]
  4. TEMAZEPAM [Concomitant]
  5. ACETAMINOPHEN W/OXYCODONE [Concomitant]
  6. FERROUS SO4 [Concomitant]

REACTIONS (1)
  - GASTROINTESTINAL HAEMORRHAGE [None]
